FAERS Safety Report 6059434-4 (Version None)
Quarter: 2009Q1

REPORT INFORMATION
  Report Type: 
  Country: None (occurrence: None)
  Receive Date: 20090130
  Receipt Date: 20090126
  Transmission Date: 20090719
  Serious: Yes (Other)
  Sender: FDA-Public Use
  Company Number: PHHY2008DE27185

PATIENT
  Age: 63 Year
  Sex: Female
  Weight: 165 kg

DRUGS (9)
  1. SANDIMMUNE [Suspect]
     Indication: DERMATITIS ATOPIC
     Dosage: 180 MG/D
     Route: 048
     Dates: start: 20081014
  2. SANDIMMUNE [Suspect]
     Dosage: 100 MG/DAY
     Route: 048
  3. IRBESARTAN [Concomitant]
     Indication: HYPERTENSION
     Route: 065
  4. ACE INHIBITOR NOS [Concomitant]
     Indication: HYPERTENSION
     Route: 065
  5. HYDROCHLOROTHIAZIDE [Concomitant]
     Indication: HYPERTENSION
     Route: 065
  6. JODTHYROX [Concomitant]
     Route: 065
  7. CARBIZIDE [Concomitant]
     Route: 065
  8. NITROLINGUAL [Concomitant]
     Indication: BLOOD PRESSURE ABNORMAL
     Dosage: PER REAL NEED
     Route: 065
  9. BETA BLOCKING AGENTS [Concomitant]
     Indication: HYPERTENSION
     Route: 065

REACTIONS (2)
  - BLOOD PRESSURE FLUCTUATION [None]
  - HYPERTENSIVE CRISIS [None]
